FAERS Safety Report 16414411 (Version 2)
Quarter: 2019Q3

REPORT INFORMATION
  Report Type: Spontaneous
  Country: JP (occurrence: JP)
  Receive Date: 20190611
  Receipt Date: 20190814
  Transmission Date: 20191004
  Serious: Yes (Other)
  Sender: FDA-Public Use
  Company Number: JP-009507513-1906JPN000576J

PATIENT
  Age: 6 Decade
  Sex: Male

DRUGS (1)
  1. KEYTRUDA [Suspect]
     Active Substance: PEMBROLIZUMAB
     Indication: NON-SMALL CELL LUNG CANCER
     Dosage: 200 MILLIGRAM, Q3W
     Route: 041
     Dates: start: 20190520

REACTIONS (1)
  - Bone marrow failure [Recovered/Resolved]

NARRATIVE: CASE EVENT DATE: 201905
